FAERS Safety Report 5189106-X (Version None)
Quarter: 2006Q4

REPORT INFORMATION
  Report Type: 
  Country: None (occurrence: None)
  Receive Date: 20061218
  Receipt Date: 20061208
  Transmission Date: 20070319
  Serious: Yes (Hospitalization)
  Sender: FDA-Public Use
  Company Number: APP200600313

PATIENT
  Age: 3 Year
  Sex: Female
  Weight: 12.6 kg

DRUGS (8)
  1. PROTAMINE SULFATE [Suspect]
     Indication: HEPARIN NEUTRALISATION THERAPY
     Dosage: (75 MG, ONCE), INTRAVENOUS
     Route: 042
  2. SEVOFLURANE [Concomitant]
  3. PANCURONIUM [Concomitant]
  4. CEFAZOLIN [Concomitant]
  5. METHYLPREDNISOLONE [Concomitant]
  6. FENTANYL [Concomitant]
  7. ISOFLURANE [Concomitant]
  8. HEPARIN [Concomitant]

REACTIONS (4)
  - BLOOD PRESSURE DECREASED [None]
  - POST PROCEDURAL COMPLICATION [None]
  - PULMONARY HYPERTENSION [None]
  - SINUS TACHYCARDIA [None]
